FAERS Safety Report 8746192 (Version 2)
Quarter: 2012Q4

REPORT INFORMATION
  Report Type: 
  Country: US (occurrence: US)
  Receive Date: 20120827
  Receipt Date: 20120926
  Transmission Date: 20130627
  Serious: No
  Sender: FDA-Public Use
  Company Number: PHEH2012US016570

PATIENT
  Sex: Male

DRUGS (6)
  1. TASIGNA [Suspect]
     Dosage: UNK
     Dates: start: 20120620
  2. LEVETIRACETAM [Concomitant]
  3. CARVEDILOL [Concomitant]
  4. ISOSORBIDE [Concomitant]
  5. SIMVASTATIN [Concomitant]
  6. RESTORIL [Concomitant]

REACTIONS (3)
  - Chills [Unknown]
  - Confusional state [Unknown]
  - Asthenia [Unknown]
